FAERS Safety Report 6169579-6 (Version None)
Quarter: 2009Q2

REPORT INFORMATION
  Report Type: 
  Country: None (occurrence: None)
  Receive Date: 20090428
  Receipt Date: 20090422
  Transmission Date: 20091009
  Serious: Yes (Hospitalization)
  Sender: FDA-Public Use
  Company Number: FR-BRISTOL-MYERS SQUIBB COMPANY-14599955

PATIENT
  Age: 67 Year
  Sex: Female

DRUGS (22)
  1. AMIKLIN INJ 1 G [Suspect]
     Indication: ANTIBIOTIC THERAPY
     Dosage: AMIKLIN 1G
     Route: 042
     Dates: start: 20081028, end: 20081030
  2. VANCOMYCIN HCL [Suspect]
     Indication: ANTIBIOTIC THERAPY
     Route: 042
     Dates: start: 20081028, end: 20081106
  3. FORTUM [Suspect]
     Indication: ANTIBIOTIC THERAPY
     Dosage: ONE UNIT
     Route: 042
     Dates: start: 20081028, end: 20081110
  4. PYOSTACINE [Suspect]
     Indication: ABSCESS
     Dosage: 6 TABS
     Route: 048
     Dates: start: 20081018, end: 20081028
  5. PENICILLIN G [Suspect]
     Indication: ABSCESS
     Route: 042
     Dates: start: 20081018, end: 20081028
  6. INIPOMP [Suspect]
     Dosage: 1 ENTERIC COATED TAB
     Route: 048
     Dates: start: 20081101, end: 20081107
  7. DILTIAZEM HCL [Suspect]
     Dosage: BI-TILDIEM LP. 2 COATED PROLONGED-RELEASE TAB
     Route: 048
     Dates: end: 20081109
  8. ATARAX [Suspect]
     Indication: ANXIETY
     Dosage: ONE COATED TAB
     Route: 048
     Dates: end: 20081112
  9. DI-ANTALVIC [Suspect]
     Indication: PAIN
     Dosage: 1 DF= 6 UNITS
     Route: 048
     Dates: start: 20081023, end: 20081029
  10. LEVOTHYROX [Concomitant]
  11. COAPROVEL [Concomitant]
  12. LANTUS [Concomitant]
  13. ZOLPIDEM TARTRATE [Concomitant]
  14. HEMIGOXINE NATIVELLE [Concomitant]
     Dates: start: 20081021
  15. LOVENOX [Concomitant]
     Dates: start: 20081021
  16. ISOPTIN [Concomitant]
     Dates: start: 20081026
  17. ZYRTEC [Concomitant]
     Dates: start: 20081021, end: 20081116
  18. ACTISKENAN [Concomitant]
     Dosage: 01NOV08
     Dates: start: 20081023
  19. ACUPAN [Concomitant]
     Dosage: 01NOV08
     Dates: start: 20081101
  20. ACETAMINOPHEN [Concomitant]
     Dates: start: 20081106, end: 20081108
  21. PREVISCAN [Concomitant]
  22. HUMALOG [Concomitant]

REACTIONS (1)
  - ACUTE GENERALISED EXANTHEMATOUS PUSTULOSIS [None]
